FAERS Safety Report 8197828-1 (Version None)
Quarter: 2012Q1

REPORT INFORMATION
  Report Type: 
  Country: None (occurrence: None)
  Receive Date: 20120307
  Receipt Date: 20120301
  Transmission Date: 20120608
  Serious: Yes (Hospitalization, Other)
  Sender: FDA-Public Use
  Company Number: ADR-2012-00495

PATIENT
  Sex: Male

DRUGS (2)
  1. LIORESAL [Suspect]
     Indication: BRAIN INJURY
  2. LIORESAL [Suspect]
     Indication: MUSCLE SPASTICITY

REACTIONS (1)
  - WOUND DEHISCENCE [None]
